FAERS Safety Report 25461529 (Version 1)
Quarter: 2025Q2

REPORT INFORMATION
  Report Type: Spontaneous
  Country: JP (occurrence: JP)
  Receive Date: 20250620
  Receipt Date: 20250620
  Transmission Date: 20250716
  Serious: Yes (Death)
  Sender: MYLAN
  Company Number: JP-MYE-2025M1051469AA

PATIENT
  Age: 8 Decade
  Sex: Female
  Weight: 36 kg

DRUGS (12)
  1. PAROXETINE [Suspect]
     Active Substance: PAROXETINE
     Indication: Depression
  2. PAROXETINE [Suspect]
     Active Substance: PAROXETINE
     Route: 065
  3. PAROXETINE [Suspect]
     Active Substance: PAROXETINE
     Route: 065
  4. PAROXETINE [Suspect]
     Active Substance: PAROXETINE
  5. SUVOREXANT [Suspect]
     Active Substance: SUVOREXANT
     Indication: Insomnia
  6. SUVOREXANT [Suspect]
     Active Substance: SUVOREXANT
     Route: 065
  7. SUVOREXANT [Suspect]
     Active Substance: SUVOREXANT
     Route: 065
  8. SUVOREXANT [Suspect]
     Active Substance: SUVOREXANT
  9. ZOPICLONE [Suspect]
     Active Substance: ZOPICLONE
     Indication: Insomnia
  10. ZOPICLONE [Suspect]
     Active Substance: ZOPICLONE
     Route: 065
  11. ZOPICLONE [Suspect]
     Active Substance: ZOPICLONE
     Route: 065
  12. ZOPICLONE [Suspect]
     Active Substance: ZOPICLONE

REACTIONS (3)
  - Loss of consciousness [Fatal]
  - Hypothermia [Fatal]
  - Toxicity to various agents [Fatal]
